FAERS Safety Report 4788651-6 (Version None)
Quarter: 2005Q3

REPORT INFORMATION
  Report Type: 
  Country: None (occurrence: None)
  Receive Date: 20050915
  Receipt Date: 20050707
  Transmission Date: 20060218
  Serious: No
  Sender: FDA-Public Use
  Company Number: BDI-007345

PATIENT
  Age: 73 Year
  Sex: Male
  Weight: 91 kg

DRUGS (3)
  1. MULTIHANCE [Suspect]
     Indication: ANGIOGRAM
     Dosage: 30 ML ONCE IV
     Route: 042
     Dates: start: 20050701, end: 20050701
  2. MULTIHANCE [Suspect]
     Indication: NUCLEAR MAGNETIC RESONANCE IMAGING
     Dosage: 30 ML ONCE IV
     Route: 042
     Dates: start: 20050701, end: 20050701
  3. SALINE [Concomitant]

REACTIONS (2)
  - DRUG INEFFECTIVE [None]
  - INJECTION SITE PAIN [None]
